FAERS Safety Report 8018282-6 (Version None)
Quarter: 2012Q1

REPORT INFORMATION
  Report Type: 
  Country: None (occurrence: None)
  Receive Date: 20120103
  Receipt Date: 20111229
  Transmission Date: 20120608
  Serious: Yes (Hospitalization, Other)
  Sender: FDA-Public Use
  Company Number: ES-GENZYME-THYM-1003061

PATIENT
  Age: 54 Year
  Sex: Female

DRUGS (6)
  1. TACROLIMUS [Suspect]
     Indication: RENAL TRANSPLANT
     Dosage: 14 MG, QD
     Route: 048
     Dates: start: 20110802
  2. MYFORTIC [Suspect]
     Indication: RENAL TRANSPLANT
     Dosage: 360 MG, UNK
     Route: 048
     Dates: start: 20110729
  3. PROPOFOL [Suspect]
     Indication: ANAESTHESIA
     Dosage: 40 MG, QD
     Route: 042
     Dates: start: 20110803, end: 20110803
  4. FLEBOGAMMA [Suspect]
     Indication: RENAL TRANSPLANT
     Dosage: 30 G, QD
     Route: 042
     Dates: start: 20110803, end: 20110806
  5. THYMOGLOBULIN [Suspect]
     Indication: PROPHYLAXIS AGAINST TRANSPLANT REJECTION
     Dosage: 100 MG, QD
     Route: 042
     Dates: start: 20110803, end: 20110806
  6. FENTANYL [Suspect]
     Indication: ANAESTHESIA
     Dosage: 100 MCG, QD
     Route: 042
     Dates: start: 20110803, end: 20110803

REACTIONS (2)
  - PANCREATITIS ACUTE [None]
  - CYTOMEGALOVIRUS INFECTION [None]
